FAERS Safety Report 10504220 (Version 2)
Quarter: 2014Q4

REPORT INFORMATION
  Report Type: Spontaneous
  Country: US (occurrence: None)
  Receive Date: 20141006
  Receipt Date: 20141124
  Transmission Date: 20150528
  Serious: Yes (Hospitalization)
  Sender: FDA-Public Use
  Company Number: 2014-US-012365

PATIENT
  Age: 63 Year
  Sex: Female

DRUGS (20)
  1. FISH OIL NATURE MADE (LOVAZA FISH OIL) [Concomitant]
  2. LYRICA [Concomitant]
     Active Substance: PREGABALIN
  3. METFORMIN HCL (METFORMIN HYDROCHLORIDE) [Concomitant]
  4. HYDROCHLOROTHIAZIDE (HYDROCHLOROTHIAZIDE) ONGOING [Concomitant]
  5. KLONOPIN [Concomitant]
     Active Substance: CLONAZEPAM
  6. ASPIRIN (ACETYLSALICYLIC ACID) ONGOING [Concomitant]
  7. ORACEA [Concomitant]
     Active Substance: DOXYCYCLINE
  8. PREVACID [Concomitant]
     Active Substance: LANSOPRAZOLE
  9. NITROGLYCERINE (GLYCERYL TRINITRATE) [Concomitant]
  10. SAVELLA [Concomitant]
     Active Substance: MILNACIPRAN HYDROCHLORIDE
  11. XYREM [Suspect]
     Active Substance: SODIUM OXYBATE
     Indication: SLEEP DISORDER
     Route: 048
     Dates: start: 200711
  12. AMIGTIZA (LUBIPROSTONE) ONGOING [Concomitant]
  13. REQUIP [Concomitant]
     Active Substance: ROPINIROLE HYDROCHLORIDE
  14. CRESTOR [Concomitant]
     Active Substance: ROSUVASTATIN CALCIUM
  15. TOPROL (METOPROLOL SUCCINATE) [Concomitant]
  16. MULTIVITAMIN (VITAMINS NOS) [Concomitant]
     Active Substance: VITAMINS
  17. BIOTIN (BIOTIN) [Concomitant]
  18. LEXAPRO [Concomitant]
     Active Substance: ESCITALOPRAM OXALATE
  19. SYNTHROID [Concomitant]
     Active Substance: LEVOTHYROXINE SODIUM
  20. DIOVAN (VALSARTAN) ONGOING [Concomitant]

REACTIONS (5)
  - Spinal osteoarthritis [None]
  - Intervertebral disc injury [None]
  - Neck injury [None]
  - Intentional product misuse [None]
  - Off label use [None]

NARRATIVE: CASE EVENT DATE: 201404
